FAERS Safety Report 25583646 (Version 1)
Quarter: 2025Q3

REPORT INFORMATION
  Report Type: Spontaneous
  Country: US (occurrence: US)
  Receive Date: 20250721
  Receipt Date: 20250721
  Transmission Date: 20251021
  Serious: Yes (Life-Threatening, Hospitalization)
  Sender: SANOFI AVENTIS
  Company Number: US-SANOFI-02589781

PATIENT
  Sex: Male

DRUGS (1)
  1. DUPIXENT [Suspect]
     Active Substance: DUPILUMAB
     Indication: Nasal polyps
     Route: 065
     Dates: start: 2023, end: 202501

REACTIONS (8)
  - Asthma [Recovering/Resolving]
  - Eosinophil count decreased [Unknown]
  - Pustule [Unknown]
  - Dry skin [Unknown]
  - Productive cough [Unknown]
  - Arthropathy [Unknown]
  - Dry eye [Unknown]
  - Hypersensitivity [Unknown]

NARRATIVE: CASE EVENT DATE: 20250101
